FAERS Safety Report 12892966 (Version 2)
Quarter: 2016Q4

REPORT INFORMATION
  Report Type: Spontaneous
  Country: US (occurrence: US)
  Receive Date: 20161028
  Receipt Date: 20161114
  Transmission Date: 20170207
  Serious: No
  Sender: FDA-Public Use
  Company Number: US-BAYER-2016-207992

PATIENT
  Age: 38 Year
  Sex: Male

DRUGS (3)
  1. IBUPROFEN. [Concomitant]
     Active Substance: IBUPROFEN
     Dosage: UNK
  2. ALEVE [Suspect]
     Active Substance: NAPROXEN SODIUM
     Indication: PAIN
     Dosage: UNK
     Dates: start: 20161026
  3. VALIUM [Concomitant]
     Active Substance: DIAZEPAM

REACTIONS (3)
  - Drug ineffective [None]
  - Intentional product use issue [None]
  - Product use issue [Unknown]

NARRATIVE: CASE EVENT DATE: 20161027
